FAERS Safety Report 7014433-0 (Version None)
Quarter: 2010Q3

REPORT INFORMATION
  Report Type: 
  Country: None (occurrence: None)
  Receive Date: 20100927
  Receipt Date: 20100923
  Transmission Date: 20110219
  Serious: Yes (Death)
  Sender: FDA-Public Use
  Company Number: PHHY2010US62050

PATIENT
  Sex: Female

DRUGS (2)
  1. EXJADE [Suspect]
     Indication: IRON METABOLISM DISORDER
     Dosage: 1000 MG
     Route: 048
     Dates: start: 20100301
  2. VIDAZA [Concomitant]

REACTIONS (3)
  - CENTRAL VENOUS CATHETERISATION [None]
  - DEVICE RELATED INFECTION [None]
  - SEPTIC SHOCK [None]
